FAERS Safety Report 23243095 (Version 1)
Quarter: 2023Q4

REPORT INFORMATION
  Report Type: Spontaneous
  Country: US (occurrence: US)
  Receive Date: 20231130
  Receipt Date: 20231130
  Transmission Date: 20240109
  Serious: Yes (Death, Other)
  Sender: FDA-Public Use
  Company Number: US-AMGEN-USASP2023210222

PATIENT
  Age: 57 Year
  Sex: Female

DRUGS (3)
  1. CINACALCET HYDROCHLORIDE [Suspect]
     Active Substance: CINACALCET HYDROCHLORIDE
     Indication: Hypercalcaemia
     Dosage: UNK
     Route: 065
  2. CALCITONIN [Concomitant]
     Active Substance: CALCITONIN
     Dosage: 4 MICROGRAM/KILOGRAM, BID
  3. ZOLEDRONIC ACID [Concomitant]
     Active Substance: ZOLEDRONIC ACID
     Dosage: 4 MILLIGRAM

REACTIONS (2)
  - Cervix cancer metastatic [Fatal]
  - Multiple organ dysfunction syndrome [Unknown]
